FAERS Safety Report 18913214 (Version 2)
Quarter: 2021Q1

REPORT INFORMATION
  Report Type: Other
  Country: US (occurrence: US)
  Receive Date: 20210219
  Receipt Date: 20210316
  Transmission Date: 20210420
  Serious: Yes (Hospitalization)
  Sender: FDA-Public Use
  Company Number: US-ROCHE-2768017

PATIENT
  Age: 39 Year
  Sex: Male
  Weight: 70.82 kg

DRUGS (4)
  1. DALFAMPRIDINE. [Concomitant]
     Active Substance: DALFAMPRIDINE
     Indication: NEURALGIA
     Dosage: STARTED AROUND MAR/2020 AFTER MEALS
     Route: 048
  2. OCREVUS [Suspect]
     Active Substance: OCRELIZUMAB
     Indication: PROGRESSIVE MULTIPLE SCLEROSIS
     Dosage: 300 MG ON DAY 1 AND DAY 15; THEN 60 MG IN 6 MONTHS?DATE OF TREATMENT: 27/MAR/2020, 18/SEP/2020 AND 2
     Route: 042
     Dates: start: 20200303
  3. VITAMIN B COMPLEX [Concomitant]
     Active Substance: CYANOCOBALAMIN\DEXPANTHENOL\NIACINAMIDE\PYRIDOXINE HYDROCHLORIDE\RIBOFLAVIN 5^-PHOSPHATE SODIUM\THIAMINE HYDROCHLORIDE\VITAMIN B COMPLEX
     Dosage: VITAMINS B1, B3, B6, AND B12?STOPPED RECENTLY IN 2021 ;ONGOING: NO
     Route: 048
     Dates: start: 20210110
  4. GABAPENTIN. [Concomitant]
     Active Substance: GABAPENTIN
     Dosage: STARTED AROUND MAR/2020 AFTER MEALS
     Route: 048

REACTIONS (10)
  - Pain [Not Recovered/Not Resolved]
  - Vitamin D decreased [Not Recovered/Not Resolved]
  - Hypervitaminosis B [Not Recovered/Not Resolved]
  - Asthenia [Not Recovered/Not Resolved]
  - Gait disturbance [Not Recovered/Not Resolved]
  - COVID-19 [Recovered/Resolved]
  - Influenza [Recovered/Resolved]
  - Fall [Unknown]
  - Depressive symptom [Unknown]
  - Rash [Recovered/Resolved]

NARRATIVE: CASE EVENT DATE: 20200313
